FAERS Safety Report 21592552 (Version 1)
Quarter: 2022Q4

REPORT INFORMATION
  Report Type: Spontaneous
  Country: US (occurrence: None)
  Receive Date: 20221112
  Receipt Date: 20221112
  Transmission Date: 20230113
  Serious: No
  Sender: FDA-Public Use
  Company Number: None

PATIENT
  Sex: Male
  Weight: 67.13 kg

DRUGS (14)
  1. ABIRATERONE ACETATE [Suspect]
     Active Substance: ABIRATERONE ACETATE
     Indication: Prostate cancer
     Dosage: 1000 MG DAILY ORAL
     Route: 048
     Dates: start: 20201114
  2. ASPIRIN [Concomitant]
     Active Substance: ASPIRIN
  3. CHOLESTYRAMINE [Concomitant]
     Active Substance: CHOLESTYRAMINE
  4. Coenzyme Q-10 [Concomitant]
  5. CRANBERRY [Concomitant]
     Active Substance: CRANBERRY
  6. DOCUSATE [Concomitant]
     Active Substance: DOCUSATE
  7. DOXYLAMINE [Concomitant]
     Active Substance: DOXYLAMINE
  8. LISINOPRIL [Concomitant]
     Active Substance: LISINOPRIL
  9. HYDROCHLOROTHIAZIDE [Concomitant]
     Active Substance: HYDROCHLOROTHIAZIDE
  10. PLAVIX [Concomitant]
     Active Substance: CLOPIDOGREL BISULFATE
  11. PREDNISONE [Concomitant]
     Active Substance: PREDNISONE
  12. TYLENOL [Concomitant]
     Active Substance: ACETAMINOPHEN
  13. VITAMIN C [Concomitant]
     Active Substance: ASCORBIC ACID
  14. VITAMIN D3 [Concomitant]
     Active Substance: CHOLECALCIFEROL

REACTIONS (2)
  - Prostatic specific antigen increased [None]
  - Therapy cessation [None]
